FAERS Safety Report 24556084 (Version 1)
Quarter: 2024Q4

REPORT INFORMATION
  Report Type: Report from Study
  Country: JP (occurrence: JP)
  Receive Date: 20241028
  Receipt Date: 20241028
  Transmission Date: 20250115
  Serious: Yes (Hospitalization)
  Sender: EISAI
  Company Number: JP-Eisai-EC-2024-177236

PATIENT

DRUGS (1)
  1. LEQEMBI [Suspect]
     Active Substance: LECANEMAB-IRMB
     Indication: Dementia Alzheimer^s type
     Dosage: 500MG. DOSE AND FREQUENCY UNKNOWN
     Route: 042
     Dates: end: 20241021

REACTIONS (1)
  - Subdural haematoma [Not Recovered/Not Resolved]
